FAERS Safety Report 7451076-9 (Version None)
Quarter: 2011Q2

REPORT INFORMATION
  Report Type: 
  Country: None (occurrence: None)
  Receive Date: 20110429
  Receipt Date: 20110429
  Transmission Date: 20111010
  Serious: No
  Sender: FDA-Public Use
  Company Number: None

PATIENT
  Age: 78 Year
  Sex: Male
  Weight: 81 kg

DRUGS (1)
  1. COLCHICINE [Suspect]
     Dosage: 0.6MG BID PO
     Route: 048
     Dates: start: 20110126, end: 20110407

REACTIONS (5)
  - RENAL FAILURE ACUTE [None]
  - DIARRHOEA [None]
  - ASTHENIA [None]
  - FEELING ABNORMAL [None]
  - DIZZINESS [None]
